FAERS Safety Report 23268262 (Version 1)
Quarter: 2023Q4

REPORT INFORMATION
  Report Type: Spontaneous
  Country: US (occurrence: None)
  Receive Date: 20231206
  Receipt Date: 20231206
  Transmission Date: 20240110
  Serious: Yes (Death)
  Sender: FDA-Public Use
  Company Number: None

PATIENT
  Age: 86 Year
  Sex: Male

DRUGS (6)
  1. BEXAROTENE [Suspect]
     Active Substance: BEXAROTENE
     Indication: Essential hypertension
     Dosage: FREQUENCY : DAILY;?
     Route: 048
     Dates: start: 20230131
  2. BEXAROTENE [Suspect]
     Active Substance: BEXAROTENE
     Dosage: FREQUENCY : DAILY;?
     Route: 048
  3. AVODART [Concomitant]
     Active Substance: DUTASTERIDE
  4. BENZONATATE [Concomitant]
     Active Substance: BENZONATATE
  5. CENTRUM [Concomitant]
  6. FLOMAX [Concomitant]
     Active Substance: TAMSULOSIN HYDROCHLORIDE

REACTIONS (1)
  - Death [None]

NARRATIVE: CASE EVENT DATE: 20231101
